FAERS Safety Report 22227480 (Version 5)
Quarter: 2025Q3

REPORT INFORMATION
  Report Type: Report from Study
  Country: EU (occurrence: EU)
  Receive Date: 20230419
  Receipt Date: 20250916
  Transmission Date: 20251021
  Serious: Yes (Other)
  Sender: TAKEDA
  Company Number: EU-TAKEDA-2023TUS039059

PATIENT
  Age: 31 Year
  Sex: Male

DRUGS (3)
  1. VEDOLIZUMAB [Suspect]
     Active Substance: VEDOLIZUMAB
     Indication: Colitis ulcerative
  2. VEDOLIZUMAB [Suspect]
     Active Substance: VEDOLIZUMAB
     Indication: Crohn^s disease
  3. STELARA [Concomitant]
     Active Substance: USTEKINUMAB

REACTIONS (4)
  - Crohn^s disease [Not Recovered/Not Resolved]
  - Incorrect dose administered [Recovered/Resolved]
  - Injection site extravasation [Recovered/Resolved]
  - Wrong technique in device usage process [Recovered/Resolved]

NARRATIVE: CASE EVENT DATE: 20230301
